FAERS Safety Report 9186875 (Version 1)
Quarter: 2013Q1

REPORT INFORMATION
  Report Type: Spontaneous
  Country: US (occurrence: US)
  Receive Date: 20130325
  Receipt Date: 20130325
  Transmission Date: 20140127
  Serious: No
  Sender: FDA-Public Use
  Company Number: US-PFIZER INC-2013092332

PATIENT
  Age: 14 Month
  Sex: Female
  Weight: 7.71 kg

DRUGS (2)
  1. INFANT ADVIL CONCENTRATED DROPS [Suspect]
     Indication: PYREXIA
     Dosage: 1.25 ML, AS NEEDED
     Route: 048
     Dates: start: 201210
  2. INFANT ADVIL CONCENTRATED DROPS [Suspect]
     Indication: TEETHING

REACTIONS (4)
  - Insomnia [Not Recovered/Not Resolved]
  - Feeling abnormal [Not Recovered/Not Resolved]
  - Energy increased [Unknown]
  - Therapeutic response unexpected [Unknown]
